FAERS Safety Report 8369418-9 (Version None)
Quarter: 2012Q2

REPORT INFORMATION
  Report Type: 
  Country: None (occurrence: None)
  Receive Date: 20120516
  Receipt Date: 20120516
  Transmission Date: 20120825
  Serious: Yes (Life-Threatening)
  Sender: FDA-Public Use
  Company Number: None

PATIENT
  Age: 72 Year
  Sex: Male
  Weight: 81.6475 kg

DRUGS (2)
  1. XIFAXAN [Suspect]
     Indication: HEPATIC ENCEPHALOPATHY
     Dosage: 1 TABLET 550 MG TWICE A DAY PO
     Route: 048
     Dates: start: 20120301, end: 20120504
  2. XIFAXAN [Suspect]
     Indication: PROPHYLAXIS
     Dosage: 1 TABLET 550 MG TWICE A DAY PO
     Route: 048
     Dates: start: 20120301, end: 20120504

REACTIONS (5)
  - DIZZINESS [None]
  - ASTHENIA [None]
  - OEDEMA PERIPHERAL [None]
  - ACTIVITIES OF DAILY LIVING IMPAIRED [None]
  - CONFUSIONAL STATE [None]
